FAERS Safety Report 20517950 (Version 1)
Quarter: 2022Q1

REPORT INFORMATION
  Report Type: Spontaneous
  Country: US (occurrence: None)
  Receive Date: 20220224
  Receipt Date: 20220224
  Transmission Date: 20220423
  Serious: No
  Sender: FDA-Public Use
  Company Number: None

PATIENT
  Age: 85 Year
  Sex: Male

DRUGS (1)
  1. APIXABAN [Suspect]
     Active Substance: APIXABAN
     Dosage: 2.5 MG BID PO
     Route: 048

REACTIONS (2)
  - Disease progression [None]
  - Haemorrhage [None]

NARRATIVE: CASE EVENT DATE: 20210528
